FAERS Safety Report 15168319 (Version 5)
Quarter: 2022Q4

REPORT INFORMATION
  Report Type: Spontaneous
  Country: GB (occurrence: GB)
  Receive Date: 20180719
  Receipt Date: 20221026
  Transmission Date: 20230113
  Serious: Yes (Death, Hospitalization, Other)
  Sender: FDA-Public Use
  Company Number: PHHY2016GB187015

PATIENT
  Age: 50 Year
  Sex: Female

DRUGS (24)
  1. TRASTUZUMAB [Suspect]
     Active Substance: TRASTUZUMAB
     Indication: Breast cancer metastatic
     Dosage: 651 MG, UNK (LOADING DOSE)
     Route: 042
  2. TRASTUZUMAB [Suspect]
     Active Substance: TRASTUZUMAB
     Dosage: 651 MG (LOADING DOSE)
     Route: 042
     Dates: start: 20160620, end: 20160620
  3. TRASTUZUMAB [Suspect]
     Active Substance: TRASTUZUMAB
     Dosage: 483 MG, Q3W (MAINTENANCE DOSE)
     Route: 042
     Dates: start: 20160714
  4. DOCETAXEL [Suspect]
     Active Substance: DOCETAXEL
     Indication: Breast cancer metastatic
     Dosage: 150 MG, Q3W
     Route: 042
     Dates: start: 20160621, end: 20161026
  5. CAPECITABINE [Suspect]
     Active Substance: CAPECITABINE
     Indication: Product used for unknown indication
     Dosage: 2000 MG, QD (TABLET)
     Route: 048
     Dates: start: 20160427, end: 20160525
  6. ADO-TRASTUZUMAB EMTANSINE [Suspect]
     Active Substance: ADO-TRASTUZUMAB EMTANSINE
     Indication: Breast cancer metastatic
     Dosage: 651 MG, TIW
     Route: 042
     Dates: start: 20160620, end: 20160620
  7. ADO-TRASTUZUMAB EMTANSINE [Suspect]
     Active Substance: ADO-TRASTUZUMAB EMTANSINE
     Dosage: 483 MG, TIW
     Route: 042
     Dates: start: 20160714, end: 20160714
  8. ADO-TRASTUZUMAB EMTANSINE [Suspect]
     Active Substance: ADO-TRASTUZUMAB EMTANSINE
     Dosage: 240 MG, TIW
     Route: 042
     Dates: start: 20161123
  9. ADO-TRASTUZUMAB EMTANSINE [Suspect]
     Active Substance: ADO-TRASTUZUMAB EMTANSINE
     Dosage: 220 MG, TIW
     Route: 042
     Dates: start: 20170112
  10. ADO-TRASTUZUMAB EMTANSINE [Suspect]
     Active Substance: ADO-TRASTUZUMAB EMTANSINE
     Dosage: 200 MG, Q3W
     Route: 042
     Dates: start: 20170209
  11. PERTUZUMAB [Suspect]
     Active Substance: PERTUZUMAB
     Indication: Breast cancer metastatic
     Dosage: 840 MG, QD (LOADING DOSE)
     Route: 042
     Dates: start: 20160620, end: 20160620
  12. PERTUZUMAB [Suspect]
     Active Substance: PERTUZUMAB
     Dosage: 420 MG, Q3W (MAINTENANCE DOSE)
     Route: 042
     Dates: start: 20160714
  13. HYDROCORTISONE [Concomitant]
     Active Substance: HYDROCORTISONE
     Indication: Product used for unknown indication
     Dosage: UNK
     Route: 042
     Dates: start: 20160914, end: 20161026
  14. FILGRASTIM [Concomitant]
     Active Substance: FILGRASTIM
     Indication: Product used for unknown indication
     Dosage: 300 UG
     Route: 058
     Dates: start: 20161123, end: 20170209
  15. LOPERAMIDE [Concomitant]
     Active Substance: LOPERAMIDE
     Indication: Product used for unknown indication
     Dosage: 4 MG
     Route: 048
  16. FUCIDIN [Concomitant]
     Active Substance: FUSIDATE SODIUM
     Indication: Product used for unknown indication
     Dosage: UNK (0.25 DAY)
     Route: 061
     Dates: start: 20171123, end: 20171208
  17. CHLORPHENIRAMINE MALEATE [Concomitant]
     Active Substance: CHLORPHENIRAMINE MALEATE
     Indication: Product used for unknown indication
     Dosage: UNK
     Route: 042
     Dates: start: 20160914, end: 20161026
  18. ALBUTEROL [Concomitant]
     Active Substance: ALBUTEROL
     Indication: Product used for unknown indication
     Dosage: UNK
     Route: 065
  19. NOVORAPID [Concomitant]
     Active Substance: INSULIN ASPART
     Indication: Product used for unknown indication
     Dosage: UNK
     Route: 030
  20. LEVEMIR [Concomitant]
     Active Substance: INSULIN DETEMIR
     Indication: Product used for unknown indication
     Dosage: UNK (50 UNIT)
     Route: 030
  21. DAPSONE [Concomitant]
     Active Substance: DAPSONE
     Indication: Product used for unknown indication
     Dosage: 100 MG, QMO
     Route: 048
     Dates: start: 20161218, end: 201711
  22. ENOXAPARIN [Concomitant]
     Active Substance: ENOXAPARIN
     Indication: Product used for unknown indication
     Dosage: 150 MG
     Route: 058
     Dates: start: 20160901, end: 20160903
  23. ENOXAPARIN [Concomitant]
     Active Substance: ENOXAPARIN
     Dosage: 150 MG
     Route: 058
     Dates: start: 20171119, end: 20171127
  24. SULFAMETHOXAZOLE\TRIMETHOPRIM [Concomitant]
     Active Substance: SULFAMETHOXAZOLE\TRIMETHOPRIM
     Indication: Product used for unknown indication
     Dosage: UNK
     Route: 048
     Dates: start: 201612, end: 20161218

REACTIONS (9)
  - Disease progression [Fatal]
  - Productive cough [Recovered/Resolved]
  - Cough [Recovered/Resolved]
  - Neutropenic sepsis [Recovered/Resolved]
  - Vomiting [Recovered/Resolved]
  - Vomiting [Recovered/Resolved]
  - Vomiting [Recovered/Resolved]
  - Vomiting [Recovered/Resolved]
  - Oropharyngeal pain [Recovered/Resolved]

NARRATIVE: CASE EVENT DATE: 20160901
